FAERS Safety Report 14702689 (Version 2)
Quarter: 2018Q2

REPORT INFORMATION
  Report Type: Report from Study
  Country: US (occurrence: US)
  Receive Date: 20180402
  Receipt Date: 20180404
  Transmission Date: 20180711
  Serious: Yes (Other)
  Sender: FDA-Public Use
  Company Number: US-ROCHE-2099080

PATIENT
  Sex: Female
  Weight: 81.27 kg

DRUGS (2)
  1. XOLAIR [Suspect]
     Active Substance: OMALIZUMAB
     Indication: IDIOPATHIC URTICARIA
  2. XOLAIR [Suspect]
     Active Substance: OMALIZUMAB
     Indication: URTICARIA
     Route: 058
     Dates: start: 2018

REACTIONS (9)
  - Chills [Unknown]
  - Respiratory failure [Unknown]
  - Feeling cold [Unknown]
  - Swelling [Unknown]
  - Pain [Unknown]
  - Fear of death [Unknown]
  - Pruritus [Unknown]
  - Headache [Recovered/Resolved]
  - Malaise [Unknown]
